FAERS Safety Report 22810217 (Version 6)
Quarter: 2023Q4

REPORT INFORMATION
  Report Type: Spontaneous
  Country: US (occurrence: US)
  Receive Date: 20230810
  Receipt Date: 20231211
  Transmission Date: 20240109
  Serious: Yes (Other)
  Sender: FDA-Public Use
  Company Number: US-BRISTOL-MYERS SQUIBB COMPANY-2023-112792

PATIENT
  Age: 66 Year
  Sex: Female

DRUGS (2)
  1. REVLIMID [Suspect]
     Active Substance: LENALIDOMIDE
     Indication: Follicular lymphoma
     Dosage: DOSAGE: TAKE 1 CAPSULE BY MOUTH ONCE DAILY FOR 21 DAYS, FOLLOWED BY 7 DAYS OFF.
     Route: 048
     Dates: start: 20230120
  2. REVLIMID [Suspect]
     Active Substance: LENALIDOMIDE
     Dosage: DOSAGE: TAKE 1 WHOLE CAPSULE BY MOUTH WITH WATER EVERY DAY. DO NOT BREAK, CHEW OR OPEN.
     Route: 048
     Dates: start: 20230120

REACTIONS (13)
  - Dyspnoea [Unknown]
  - Fluid retention [Unknown]
  - Faeces discoloured [Not Recovered/Not Resolved]
  - Rash [Not Recovered/Not Resolved]
  - Nausea [Not Recovered/Not Resolved]
  - Chromaturia [Not Recovered/Not Resolved]
  - Diarrhoea [Recovering/Resolving]
  - Malaise [Unknown]
  - Weight decreased [Not Recovered/Not Resolved]
  - Blood potassium decreased [Not Recovered/Not Resolved]
  - White blood cell count decreased [Unknown]
  - Gingivitis [Not Recovered/Not Resolved]
  - Localised infection [Recovering/Resolving]
